FAERS Safety Report 13424498 (Version 3)
Quarter: 2017Q4

REPORT INFORMATION
  Report Type: Spontaneous
  Country: AU (occurrence: AU)
  Receive Date: 20170410
  Receipt Date: 20171115
  Transmission Date: 20180320
  Serious: Yes (Death, Life-Threatening, Disabling)
  Sender: FDA-Public Use
  Company Number: AU-B.I. PHARMACEUTICALS,INC./RIDGEFIELD-2017-BI-009898

PATIENT
  Age: 78 Year
  Sex: Male
  Weight: 65 kg

DRUGS (8)
  1. JARDIAMET [Suspect]
     Active Substance: EMPAGLIFLOZIN\METFORMIN HYDROCHLORIDE
     Dosage: STRENGTH AND DOSE: 5/1000
     Route: 065
  2. METOPROLOL. [Concomitant]
     Active Substance: METOPROLOL
     Indication: PRODUCT USED FOR UNKNOWN INDICATION
     Route: 065
     Dates: end: 2015
  3. ROSUVASTATIN. [Concomitant]
     Active Substance: ROSUVASTATIN
     Indication: PRODUCT USED FOR UNKNOWN INDICATION
     Route: 065
     Dates: start: 2015
  4. PREGABALIN. [Concomitant]
     Active Substance: PREGABALIN
     Indication: PRODUCT USED FOR UNKNOWN INDICATION
     Route: 065
     Dates: start: 201702
  5. RAMIPRIL. [Concomitant]
     Active Substance: RAMIPRIL
     Indication: PRODUCT USED FOR UNKNOWN INDICATION
     Route: 065
     Dates: start: 2015
  6. JARDIAMET [Suspect]
     Active Substance: EMPAGLIFLOZIN\METFORMIN HYDROCHLORIDE
     Indication: TYPE 2 DIABETES MELLITUS
     Dosage: STRENGTH AND DOSE::12.5/1000 MILLIGRAM
     Route: 065
     Dates: start: 20160407
  7. ASPIRIN. [Concomitant]
     Active Substance: ASPIRIN
     Indication: PRODUCT USED FOR UNKNOWN INDICATION
     Route: 065
     Dates: start: 2015
  8. PANTOPRAZOLE [Concomitant]
     Active Substance: PANTOPRAZOLE
     Indication: PRODUCT USED FOR UNKNOWN INDICATION
     Route: 065
     Dates: start: 201702

REACTIONS (14)
  - Pancreatic carcinoma [Fatal]
  - Arterial disorder [Fatal]
  - Splenic vein thrombosis [Fatal]
  - Renal cyst [Fatal]
  - Back pain [Not Recovered/Not Resolved]
  - Post herpetic neuralgia [Recovered/Resolved]
  - Inflammation [Fatal]
  - Splenic varices [Fatal]
  - Liver disorder [Fatal]
  - Diverticulum [Fatal]
  - Prostatomegaly [Fatal]
  - Abdominal pain [Unknown]
  - Hepatic neoplasm [Fatal]
  - Diarrhoea [Unknown]

NARRATIVE: CASE EVENT DATE: 20170213
